FAERS Safety Report 5234383-X (Version None)
Quarter: 2007Q1

REPORT INFORMATION
  Report Type: 
  Country: None (occurrence: None)
  Receive Date: 20070209
  Receipt Date: 20070129
  Transmission Date: 20070707
  Serious: Yes (Other)
  Sender: FDA-Public Use
  Company Number: PHBS2007BR02070

PATIENT
  Sex: Male

DRUGS (1)
  1. SLOW-K [Suspect]

REACTIONS (3)
  - CONDITION AGGRAVATED [None]
  - HYPERTENSION [None]
  - NEUROMYOPATHY [None]
